FAERS Safety Report 9818949 (Version 3)
Quarter: 2015Q1

REPORT INFORMATION
  Report Type: Spontaneous
  Country: US (occurrence: US)
  Receive Date: 20140115
  Receipt Date: 20150121
  Transmission Date: 20150721
  Serious: Yes (Death, Life-Threatening, Hospitalization, Other)
  Sender: FDA-Public Use
  Company Number: US-009507513-1401USA004822

PATIENT
  Sex: Male
  Weight: 79.37 kg

DRUGS (1)
  1. JANUVIA [Suspect]
     Active Substance: SITAGLIPTIN PHOSPHATE
     Indication: TYPE 2 DIABETES MELLITUS
     Dosage: 100 MG, QD
     Route: 048
     Dates: start: 20080915, end: 20111023

REACTIONS (19)
  - Metastatic neoplasm [Fatal]
  - Bladder disorder [Unknown]
  - Chronic obstructive pulmonary disease [Unknown]
  - Cachexia [Unknown]
  - Asthenia [Unknown]
  - Diverticulitis [Unknown]
  - Diverticulum [Unknown]
  - Nephrolithiasis [Unknown]
  - Gastrooesophageal reflux disease [Unknown]
  - Coronary artery disease [Unknown]
  - Coronary artery bypass [Unknown]
  - Pancreatic carcinoma recurrent [Fatal]
  - Large intestine polyp [Unknown]
  - Spinal osteoarthritis [Unknown]
  - Constipation [Unknown]
  - Pancreatic carcinoma [Fatal]
  - Pyrexia [Unknown]
  - Metastases to liver [Unknown]
  - Renal cyst [Unknown]

NARRATIVE: CASE EVENT DATE: 201008
